FAERS Safety Report 13448457 (Version 1)
Quarter: 2017Q2

REPORT INFORMATION
  Report Type: Spontaneous
  Country: US (occurrence: US)
  Receive Date: 20170417
  Receipt Date: 20170417
  Transmission Date: 20170830
  Serious: No
  Sender: FDA-Public Use
  Company Number: US-ELI_LILLY_AND_COMPANY-US201704004394

PATIENT
  Age: 64 Year
  Sex: Male

DRUGS (3)
  1. TOREAL [Concomitant]
  2. LISINOPRIL. [Concomitant]
     Active Substance: LISINOPRIL
  3. BASAGLAR [Suspect]
     Active Substance: INSULIN GLARGINE
     Indication: DIABETES MELLITUS MANAGEMENT
     Dosage: UNK
     Dates: start: 20170123, end: 20170223

REACTIONS (2)
  - Arthralgia [Recovered/Resolved]
  - Movement disorder [Recovered/Resolved]
